APPROVED DRUG PRODUCT: LOPERAMIDE HYDROCHLORIDE
Active Ingredient: LOPERAMIDE HYDROCHLORIDE
Strength: 1MG/5ML
Dosage Form/Route: SOLUTION;ORAL
Application: A074352 | Product #001
Applicant: PAI HOLDINGS LLC DBA PHARMACEUTICAL ASSOCIATES INC AND DBA PAI PHARMA
Approved: Nov 17, 1995 | RLD: No | RS: No | Type: DISCN